FAERS Safety Report 7475048-3 (Version None)
Quarter: 2011Q2

REPORT INFORMATION
  Report Type: 
  Country: None (occurrence: None)
  Receive Date: 20110512
  Receipt Date: 20110506
  Transmission Date: 20111010
  Serious: Yes (Death, Hospitalization)
  Sender: FDA-Public Use
  Company Number: CA-JNJFOC-20110504533

PATIENT
  Sex: Female

DRUGS (4)
  1. METHOTREXATE [Concomitant]
  2. SIMPONI [Suspect]
     Indication: RHEUMATOID ARTHRITIS
     Route: 058
  3. ARAVA [Concomitant]
  4. CELEBREX [Concomitant]

REACTIONS (1)
  - INTRACRANIAL ANEURYSM [None]
